FAERS Safety Report 4415994-8 (Version None)
Quarter: 2004Q3

REPORT INFORMATION
  Report Type: 
  Country: None (occurrence: None)
  Receive Date: 20040802
  Receipt Date: 20040726
  Transmission Date: 20050211
  Serious: Yes (Hospitalization)
  Sender: FDA-Public Use
  Company Number: 2004CG01475

PATIENT
  Age: 78 Year
  Sex: Female

DRUGS (3)
  1. ZESTRIL [Suspect]
     Dosage: 1 DF QD PO
     Route: 048
     Dates: end: 20040227
  2. TERALITHE [Suspect]
     Indication: BIPOLAR I DISORDER
     Dosage: 500 MG QD PO
     Route: 048
     Dates: start: 19820101, end: 20040228
  3. EUPRESSYL [Suspect]
     Indication: ESSENTIAL HYPERTENSION
     Dosage: 1 DF BID PO
     Route: 048
     Dates: end: 20040227

REACTIONS (4)
  - BLOOD CREATININE INCREASED [None]
  - DISTURBANCE IN ATTENTION [None]
  - DRUG LEVEL INCREASED [None]
  - RENAL FAILURE ACUTE [None]
